FAERS Safety Report 11171556 (Version 1)
Quarter: 2015Q2

REPORT INFORMATION
  Report Type: Spontaneous
  Country: US (occurrence: None)
  Receive Date: 20150515
  Receipt Date: 20150515
  Transmission Date: 20150821
  Serious: Yes (Other)
  Sender: FDA-Public Use
  Company Number: 2015007385

PATIENT
  Sex: Female

DRUGS (1)
  1. CIMZIA [Suspect]
     Active Substance: CERTOLIZUMAB PEGOL
     Indication: PRODUCT USED FOR UNKNOWN INDICATION
     Dosage: PFS
     Route: 058

REACTIONS (8)
  - Fatigue [None]
  - Pneumonia [None]
  - Decreased appetite [None]
  - Urinary tract infection [None]
  - Sinusitis [None]
  - Vomiting [None]
  - Nausea [None]
  - Cystitis [None]

NARRATIVE: CASE EVENT DATE: 2014
